FAERS Safety Report 24443977 (Version 2)
Quarter: 2024Q4

REPORT INFORMATION
  Report Type: Report from Study
  Country: CA (occurrence: CA)
  Receive Date: 20241016
  Receipt Date: 20241017
  Transmission Date: 20250115
  Serious: No
  Sender: ROCHE
  Company Number: CA-ROCHE-2638695

PATIENT
  Sex: Female

DRUGS (11)
  1. RITUXAN [Suspect]
     Active Substance: RITUXIMAB
     Indication: Immunoglobulin G4 related disease
     Dosage: NO PIR RECEIVED TO CONFIRM DOSE,ONGOING
     Route: 041
     Dates: start: 20190904
  2. RITUXAN [Suspect]
     Active Substance: RITUXIMAB
     Indication: Retroperitoneal fibrosis
  3. RITUXAN [Suspect]
     Active Substance: RITUXIMAB
     Indication: Mediastinitis
  4. ACCURETIC [Concomitant]
     Active Substance: HYDROCHLOROTHIAZIDE\QUINAPRIL HYDROCHLORIDE
  5. COUMADIN [Concomitant]
     Active Substance: WARFARIN SODIUM
  6. IMURAN [Concomitant]
     Active Substance: AZATHIOPRINE
  7. INSULIN NOS [Concomitant]
     Active Substance: INSULIN NOS
  8. LOSEC [Concomitant]
     Active Substance: OMEPRAZOLE
  9. PREDNISONE [Concomitant]
     Active Substance: PREDNISONE
  10. PROLIA [Concomitant]
     Active Substance: DENOSUMAB
  11. SIMVASTATIN [Concomitant]
     Active Substance: SIMVASTATIN

REACTIONS (2)
  - Off label use [Unknown]
  - No adverse event [Unknown]
